FAERS Safety Report 6959619-6 (Version None)
Quarter: 2010Q3

REPORT INFORMATION
  Report Type: 
  Country: None (occurrence: None)
  Receive Date: 20100823
  Receipt Date: 20100618
  Transmission Date: 20110219
  Serious: No
  Sender: FDA-Public Use
  Company Number: 8047867

PATIENT
  Sex: Female
  Weight: 57 kg

DRUGS (7)
  1. CIMZIA [Suspect]
     Indication: CROHN'S DISEASE
     Dosage: (400 MG 1X/4 WEEKS SUBCUTANEOUS)
     Route: 058
     Dates: start: 20090101
  2. PREDNISONE [Concomitant]
  3. BENTYL [Concomitant]
  4. CALCIUM [Concomitant]
  5. MULTI-VITAMINS [Concomitant]
  6. PRILOSEC [Concomitant]
  7. CONTRACEPTIVES NOS [Concomitant]

REACTIONS (2)
  - INJECTION SITE PAIN [None]
  - INSOMNIA [None]
